FAERS Safety Report 10705610 (Version 1)
Quarter: 2015Q1

REPORT INFORMATION
  Report Type: Spontaneous
  Country: US (occurrence: US)
  Receive Date: 20150112
  Receipt Date: 20150112
  Transmission Date: 20150721
  Serious: No
  Sender: FDA-Public Use
  Company Number: US-GLAXOSMITHKLINE-A1080738A

PATIENT

DRUGS (1)
  1. PROMACTA [Suspect]
     Active Substance: ELTROMBOPAG OLAMINE
     Indication: IMMUNE THROMBOCYTOPENIC PURPURA
     Dosage: TWO 25 MG TABLETS DAILY ON EMPTY STOMACH; SEPARATE AT LEAST 4 HOURS FROM DAIRY OR SUPPLEMENTS W[...]
     Route: 048
     Dates: start: 20140211, end: 20140630

REACTIONS (1)
  - Platelet count increased [Unknown]
